FAERS Safety Report 23941309 (Version 18)
Quarter: 2025Q2

REPORT INFORMATION
  Report Type: Spontaneous
  Country: US (occurrence: US)
  Receive Date: 20240605
  Receipt Date: 20250610
  Transmission Date: 20250717
  Serious: Yes (Life-Threatening, Hospitalization, Other)
  Sender: PFIZER
  Company Number: US-PFIZER INC-202400186050

PATIENT
  Age: 72 Year
  Sex: Female
  Weight: 65.77 kg

DRUGS (13)
  1. ESTRING [Suspect]
     Active Substance: ESTRADIOL
     Indication: Vulvovaginal dryness
     Dosage: 2 MG, EVERY 3 MONTHS/(7.5 MCG/24 HOUR)
     Route: 067
     Dates: start: 2004, end: 2024
  2. ESTRING [Suspect]
     Active Substance: ESTRADIOL
     Indication: Vulvovaginal pain
     Dosage: 2 MG, EVERY 3 MONTHS/(7 MCG/24 H)
     Route: 067
     Dates: start: 20240722
  3. ESTRING [Suspect]
     Active Substance: ESTRADIOL
     Indication: Vulvovaginal erythema
  4. ESTRING [Suspect]
     Active Substance: ESTRADIOL
     Indication: Vulvovaginal discomfort
  5. ESTRING [Suspect]
     Active Substance: ESTRADIOL
     Indication: Hormone replacement therapy
  6. ESTRING [Suspect]
     Active Substance: ESTRADIOL
     Indication: Urinary tract disorder
  7. TRELEGY ELLIPTA [Concomitant]
     Active Substance: FLUTICASONE FUROATE\UMECLIDINIUM BROMIDE\VILANTEROL TRIFENATATE
  8. ALBUTEROL [Concomitant]
     Active Substance: ALBUTEROL
  9. ATIVAN [Concomitant]
     Active Substance: LORAZEPAM
  10. CARVEDILOL [Concomitant]
     Active Substance: CARVEDILOL
     Dosage: 25 MG, 2X/DAY
  11. JARDIANCE [Concomitant]
     Active Substance: EMPAGLIFLOZIN
     Dosage: 25 MG, DAILY
  12. LOSARTAN [Concomitant]
     Active Substance: LOSARTAN
     Dosage: 25 MG, DAILY
  13. ASPIRIN [Concomitant]
     Active Substance: ASPIRIN
     Dosage: UNK, DAILY

REACTIONS (10)
  - Cardiac disorder [Recovered/Resolved with Sequelae]
  - Asthma [Unknown]
  - Cardiac failure congestive [Unknown]
  - Dehydration [Recovered/Resolved]
  - Hypertension [Unknown]
  - Colitis [Unknown]
  - Toothache [Recovered/Resolved]
  - Foot operation [Recovered/Resolved]
  - Blood sodium abnormal [Recovered/Resolved]
  - Lung disorder [Unknown]

NARRATIVE: CASE EVENT DATE: 20150731
